FAERS Safety Report 10779133 (Version 2)
Quarter: 2015Q1

REPORT INFORMATION
  Report Type: Spontaneous
  Country: US (occurrence: US)
  Receive Date: 20150210
  Receipt Date: 20150217
  Transmission Date: 20150721
  Serious: Yes (Hospitalization, Other)
  Sender: FDA-Public Use
  Company Number: US-JNJFOC-20150203376

PATIENT

DRUGS (11)
  1. OXYCONTIN [Suspect]
     Active Substance: OXYCODONE HYDROCHLORIDE
     Indication: PRODUCT USED FOR UNKNOWN INDICATION
     Route: 065
  2. REMICADE [Suspect]
     Active Substance: INFLIXIMAB
     Indication: RHEUMATOID ARTHRITIS
     Route: 042
  3. DILAUDID [Suspect]
     Active Substance: HYDROMORPHONE HYDROCHLORIDE
     Indication: PRODUCT USED FOR UNKNOWN INDICATION
     Route: 065
  4. PLAQUENIL [Suspect]
     Active Substance: HYDROXYCHLOROQUINE SULFATE
     Indication: RHEUMATOID ARTHRITIS
     Route: 065
  5. HUMIRA [Suspect]
     Active Substance: ADALIMUMAB
     Indication: RHEUMATOID ARTHRITIS
     Route: 065
  6. VICODIN [Suspect]
     Active Substance: ACETAMINOPHEN\HYDROCODONE BITARTRATE
     Indication: PRODUCT USED FOR UNKNOWN INDICATION
     Route: 065
  7. METHOTREXATE [Suspect]
     Active Substance: METHOTREXATE
     Indication: RHEUMATOID ARTHRITIS
     Route: 065
  8. ABATACEPT [Suspect]
     Active Substance: ABATACEPT
     Indication: RHEUMATOID ARTHRITIS
     Route: 065
  9. MS CONTIN [Suspect]
     Active Substance: MORPHINE SULFATE
     Indication: PRODUCT USED FOR UNKNOWN INDICATION
     Dosage: EXTENDED RELEASE
     Route: 065
  10. ENBREL [Suspect]
     Active Substance: ETANERCEPT
     Indication: RHEUMATOID ARTHRITIS
     Route: 065
  11. METHADONE [Suspect]
     Active Substance: METHADONE HYDROCHLORIDE
     Indication: PRODUCT USED FOR UNKNOWN INDICATION
     Route: 065

REACTIONS (23)
  - Benign intracranial hypertension [Unknown]
  - Fibromyalgia [Unknown]
  - Blindness unilateral [Unknown]
  - Hypertension [Unknown]
  - Knee arthroplasty [Recovering/Resolving]
  - Swelling [Unknown]
  - Loss of consciousness [Unknown]
  - Meningitis [Unknown]
  - Syncope [Unknown]
  - Hypersomnia [Unknown]
  - Intervertebral disc degeneration [Unknown]
  - Migraine [Unknown]
  - Transient ischaemic attack [Unknown]
  - Sepsis [Unknown]
  - Peripheral swelling [Unknown]
  - Drug ineffective [Unknown]
  - Vision blurred [Unknown]
  - Knee arthroplasty [Unknown]
  - Dyspnoea [Unknown]
  - Seizure [Unknown]
  - Kidney infection [Unknown]
  - Pharyngitis streptococcal [Unknown]
  - Dysuria [Unknown]

NARRATIVE: CASE EVENT DATE: 201402
